FAERS Safety Report 9199248 (Version 1)
Quarter: 2013Q1

REPORT INFORMATION
  Report Type: Spontaneous
  Country: US (occurrence: US)
  Receive Date: 20130329
  Receipt Date: 20130329
  Transmission Date: 20140127
  Serious: No
  Sender: FDA-Public Use
  Company Number: US-PFIZER INC-2013095993

PATIENT
  Age: 51 Year
  Sex: Male
  Weight: 99.77 kg

DRUGS (6)
  1. VIAGRA [Suspect]
     Indication: ERECTILE DYSFUNCTION
     Dosage: 1/4 TABLET
     Route: 048
     Dates: start: 2003, end: 2004
  2. VIAGRA [Suspect]
     Dosage: 1/2 TABLET
     Route: 048
     Dates: start: 2005, end: 2006
  3. VIAGRA [Suspect]
     Dosage: 1/2 TABLET
     Route: 048
     Dates: start: 2007, end: 2007
  4. LISINOPRIL [Concomitant]
     Indication: HYPERTENSION
     Dosage: 1 DF, 1X/DAY
     Route: 048
     Dates: start: 2008
  5. METOPROLOL TARTRATE [Concomitant]
     Indication: HYPERTENSION
     Dosage: 1 DF, 1X/DAY
     Route: 048
     Dates: start: 2001
  6. HYDROCHLOROTHIAZIDE [Concomitant]
     Indication: HYPERTENSION
     Dosage: 1 DF, 1X/DAY
     Route: 048
     Dates: start: 1994

REACTIONS (2)
  - Drug ineffective [Unknown]
  - Flushing [Recovered/Resolved]
